FAERS Safety Report 16587957 (Version 1)
Quarter: 2019Q3

REPORT INFORMATION
  Report Type: Report from Study
  Country: HK (occurrence: HK)
  Receive Date: 20190717
  Receipt Date: 20190717
  Transmission Date: 20191004
  Serious: Yes (Other)
  Sender: FDA-Public Use
  Company Number: HK-GLAXOSMITHKLINE-HK2019GSK129278

PATIENT

DRUGS (4)
  1. ENTECAVIR. [Suspect]
     Active Substance: ENTECAVIR
     Indication: HEPATITIS B SURFACE ANTIGEN POSITIVE
     Dosage: 1 MG, UNK (DAILY)
  2. LAMIVUDINE. [Suspect]
     Active Substance: LAMIVUDINE
     Indication: HEPATITIS B SURFACE ANTIGEN POSITIVE
     Dosage: UNK
  3. PREDNISOLONE. [Concomitant]
     Active Substance: PREDNISOLONE
     Indication: IMMUNOSUPPRESSION
     Dosage: UNK (5-7.5 MG/DAY)
  4. MYCOPHENOLATE MOFETIL. [Concomitant]
     Active Substance: MYCOPHENOLATE MOFETIL
     Indication: IMMUNOSUPPRESSION
     Dosage: UNK (750-1000 MG/D)

REACTIONS (6)
  - Viral mutation identified [Unknown]
  - Viraemia [Unknown]
  - Drug resistance [Unknown]
  - Hepatitis B DNA increased [Unknown]
  - Pathogen resistance [Unknown]
  - Hepatitis B reactivation [Unknown]
